FAERS Safety Report 11339702 (Version 1)
Quarter: 2015Q3

REPORT INFORMATION
  Report Type: Report from Study
  Country: DE (occurrence: None)
  Receive Date: 20150803
  Receipt Date: 20150803
  Transmission Date: 20151125
  Serious: Yes (Hospitalization)
  Sender: FDA-Public Use
  Company Number: DEP_02817_2015

PATIENT
  Age: 59 Year
  Sex: Female
  Weight: 100 kg

DRUGS (3)
  1. PROMETHAZIN (PROMETHAZIN (PROMETHAZINE HYDROCHLORIDE)) (NOT SPECIFIED) [Suspect]
     Active Substance: PROMETHAZINE\PROMETHAZINE HYDROCHLORIDE
     Indication: PRODUCT USED FOR UNKNOWN INDICATION
     Route: 048
     Dates: start: 201504
  2. TRAMADOL 1 A PHARMA (TRAMADOL 1 PHARMA DROPS) (NOT SPECIFIED) [Suspect]
     Active Substance: TRAMADOL
     Indication: PRODUCT USED FOR UNKNOWN INDICATION
     Route: 048
     Dates: start: 201504
  3. PALEXIA [Suspect]
     Active Substance: TAPENTADOL HYDROCHLORIDE
     Indication: PRODUCT USED FOR UNKNOWN INDICATION
     Route: 048
     Dates: start: 201504

REACTIONS (3)
  - Somnolence [None]
  - Depression [None]
  - Suicide attempt [None]

NARRATIVE: CASE EVENT DATE: 201504
